APPROVED DRUG PRODUCT: FUROSEMIDE
Active Ingredient: FUROSEMIDE
Strength: 40MG
Dosage Form/Route: TABLET;ORAL
Application: A218831 | Product #002 | TE Code: AB
Applicant: AUROBINDO PHARMA LTD
Approved: Jul 17, 2025 | RLD: No | RS: No | Type: RX